FAERS Safety Report 7264858-3 (Version None)
Quarter: 2011Q1

REPORT INFORMATION
  Report Type: 
  Country: None (occurrence: None)
  Receive Date: 20110131
  Receipt Date: 20100616
  Transmission Date: 20110831
  Serious: Yes (Hospitalization)
  Sender: FDA-Public Use
  Company Number: US-BAYER-200936814NA

PATIENT
  Sex: Female
  Weight: 60.9 kg

DRUGS (13)
  1. YASMIN [Suspect]
     Indication: UTERINE LEIOMYOMA
  2. POTASSIUM 99 [Concomitant]
     Dosage: UNK
     Dates: start: 20080101, end: 20100101
  3. ALLEGRA [Concomitant]
  4. ZOFRAN [Concomitant]
  5. ASPIRIN [Concomitant]
     Dosage: 81 MG, UNK
     Dates: start: 20030101
  6. IBUPROFEN [Concomitant]
     Dosage: UNK
     Dates: start: 20020101
  7. MORPHINE [Concomitant]
     Dosage: UNK
     Dates: start: 20070521
  8. CLONIDINE [Concomitant]
     Dosage: UNK
     Dates: start: 20070521
  9. K-DUR [Concomitant]
     Dosage: 20 MEQ, UNK
     Dates: start: 20080101
  10. YASMIN [Suspect]
     Indication: MENSTRUATION IRREGULAR
     Dosage: 1 DF, QD
     Route: 048
     Dates: start: 20021101, end: 20021213
  11. ACETAMINOPHEN [Concomitant]
     Dosage: UNK
     Dates: start: 20020101
  12. HYZAAR [Concomitant]
     Dosage: 50-12.5
     Dates: start: 20030101
  13. POTASSIUM CHLORIDE [Concomitant]
     Dosage: 20 MEQ, UNK
     Dates: start: 20090801

REACTIONS (13)
  - EYELID PTOSIS [None]
  - ANAEMIA [None]
  - VIITH NERVE PARALYSIS [None]
  - DIZZINESS [None]
  - HYPERTENSION [None]
  - ABDOMINAL PAIN UPPER [None]
  - CHOLELITHIASIS [None]
  - NAUSEA [None]
  - CEREBROVASCULAR ACCIDENT [None]
  - CHOLECYSTITIS ACUTE [None]
  - CHEST PAIN [None]
  - HEADACHE [None]
  - DYSPNOEA [None]
